FAERS Safety Report 5610942-7 (Version None)
Quarter: 2008Q1

REPORT INFORMATION
  Report Type: 
  Country: None (occurrence: None)
  Receive Date: 20080128
  Receipt Date: 20080114
  Transmission Date: 20080703
  Serious: Yes (Death)
  Sender: FDA-Public Use
  Company Number: 022628

PATIENT
  Age: 16 Year
  Sex: Male
  Weight: 97.5 kg

DRUGS (2)
  1. CLARAVIS [Suspect]
     Indication: ACNE
     Dosage: 20 MG,QD,ORAL; 40 MG, QD, ORAL
     Route: 048
     Dates: start: 20071106, end: 20071204
  2. CLARAVIS [Suspect]
     Indication: ACNE
     Dosage: 20 MG,QD,ORAL; 40 MG, QD, ORAL
     Route: 048
     Dates: start: 20071205

REACTIONS (2)
  - COMPLETED SUICIDE [None]
  - GUN SHOT WOUND [None]
